FAERS Safety Report 16032968 (Version 2)
Quarter: 2019Q2

REPORT INFORMATION
  Report Type: Spontaneous
  Country: BR (occurrence: BR)
  Receive Date: 20190305
  Receipt Date: 20190619
  Transmission Date: 20190711
  Serious: Yes (Disabling, Other)
  Sender: FDA-Public Use
  Company Number: BR-009507513-1903BRA000156

PATIENT
  Sex: Female

DRUGS (1)
  1. ETONOGESTREL IMPLANT- UNKNOWN [Suspect]
     Active Substance: ETONOGESTREL
     Dosage: 1 IMPLANT, UNK
     Route: 059
     Dates: start: 201712

REACTIONS (5)
  - Metrorrhagia [Recovered/Resolved]
  - Polymenorrhoea [Recovered/Resolved]
  - Quality of life decreased [Unknown]
  - Metrorrhagia [Not Recovered/Not Resolved]
  - Anaemia [Recovered/Resolved]

NARRATIVE: CASE EVENT DATE: 201712
